FAERS Safety Report 4436722-6 (Version None)
Quarter: 2004Q3

REPORT INFORMATION
  Report Type: 
  Country: None (occurrence: None)
  Receive Date: 20040728
  Receipt Date: 20031007
  Transmission Date: 20050211
  Serious: Yes (Hospitalization)
  Sender: FDA-Public Use
  Company Number: 202762

PATIENT
  Age: 66 Year
  Sex: Male
  Weight: 79.4 kg

DRUGS (3)
  1. RITUXAN [Suspect]
     Indication: LYMPHOMA
     Dosage: 800 MG, SINGLE, INTRAVENOUS
     Route: 042
     Dates: start: 20030910, end: 20030910
  2. BENADRY (DIPHENHYDRAMINE HYDROCHLORIDE) [Concomitant]
  3. TYLENOL [Concomitant]

REACTIONS (2)
  - HYPOTENSION [None]
  - INFUSION RELATED REACTION [None]
